FAERS Safety Report 17915461 (Version 1)
Quarter: 2020Q2

REPORT INFORMATION
  Report Type: Report from Study
  Country: IL (occurrence: IL)
  Receive Date: 20200619
  Receipt Date: 20200619
  Transmission Date: 20200714
  Serious: Yes (Death, Other)
  Sender: FDA-Public Use
  Company Number: IL-ROCHE-2621290

PATIENT

DRUGS (2)
  1. CHLORAMBUCIL [Suspect]
     Active Substance: CHLORAMBUCIL
     Indication: CHRONIC LYMPHOCYTIC LEUKAEMIA
     Dosage: 0.5 MG/KG ON DAYS 1 AND 15 OF EACH CYCLE FOR SIX CYCLES.
     Route: 048
  2. OBINUTUZUMAB. [Suspect]
     Active Substance: OBINUTUZUMAB
     Indication: CHRONIC LYMPHOCYTIC LEUKAEMIA
     Dosage: SIX CYCLES (STARTING WITH 100 MG ON DAY 1 AND 900 MG ON DAY 2, 1000 MG ON DAY 8, AND 1000 MG ON DAY
     Route: 042

REACTIONS (31)
  - Anaemia [Unknown]
  - Pancytopenia [Unknown]
  - Thrombocytopenia [Unknown]
  - Urinary tract disorder [Unknown]
  - Progressive multifocal leukoencephalopathy [Unknown]
  - Renal failure [Unknown]
  - Osteomyelitis [Fatal]
  - Vasculitis [Unknown]
  - Musculoskeletal disorder [Unknown]
  - Asthenia [Unknown]
  - Pneumonia [Unknown]
  - Respiratory tract infection [Unknown]
  - Infection [Unknown]
  - Nervous system disorder [Unknown]
  - Infusion related reaction [Unknown]
  - Cardiovascular disorder [Unknown]
  - Cytomegalovirus viraemia [Unknown]
  - Metabolic disorder [Unknown]
  - Febrile neutropenia [Unknown]
  - Sepsis [Fatal]
  - Neutropenia [Unknown]
  - Hepatitis B [Unknown]
  - Haemorrhage [Fatal]
  - Atrial fibrillation [Unknown]
  - Fatigue [Unknown]
  - Diarrhoea [Unknown]
  - Hepatic enzyme increased [Unknown]
  - Pyrexia [Unknown]
  - Tumour lysis syndrome [Unknown]
  - Skin disorder [Unknown]
  - Gastrointestinal disorder [Unknown]
